FAERS Safety Report 23254251 (Version 1)
Quarter: 2023Q4

REPORT INFORMATION
  Report Type: Spontaneous
  Country: ES (occurrence: ES)
  Receive Date: 20231202
  Receipt Date: 20231202
  Transmission Date: 20240110
  Serious: Yes (Hospitalization)
  Sender: FDA-Public Use
  Company Number: None

PATIENT
  Age: 54 Year
  Sex: Female

DRUGS (17)
  1. CARBOPLATIN [Suspect]
     Active Substance: CARBOPLATIN
     Indication: Lung adenocarcinoma stage IV
     Dosage: 750.0 MG EVERY 21 DAYS
     Dates: start: 20230327
  2. PEMETREXED [Suspect]
     Active Substance: PEMETREXED
     Indication: Lung adenocarcinoma stage IV
     Dosage: 990.0 MG EVERY 21 DAYS
     Dates: start: 20230327
  3. CLOTRIMAZOLE [Concomitant]
     Active Substance: CLOTRIMAZOLE
     Indication: Fungal skin infection
     Dosage: 1.0 APPLICATION EVERY 12 HOURS
     Dates: start: 20201215
  4. FERPLEX [Concomitant]
     Indication: Headache
     Dosage: 800.0 MG AT-BREAKFAST AND DINNER
     Dates: start: 20110708
  5. ZOLICO [Concomitant]
     Indication: Lung adenocarcinoma stage IV
     Dosage: 0.4 MG A-DE
     Dates: start: 20230323
  6. IBUPROFEN [Concomitant]
     Active Substance: IBUPROFEN
     Indication: Headache
     Dosage: 600.0 MG EVERY 12 HOURS
     Dates: start: 20220919
  7. ALBUTEROL [Concomitant]
     Active Substance: ALBUTEROL
     Indication: Bronchitis
     Dosage: 100.0 MCG EVERY 8 HOURS
     Dates: start: 20220826
  8. TRAZODONE [Concomitant]
     Active Substance: TRAZODONE HYDROCHLORIDE
     Indication: Grief reaction
     Dosage: 100.0 MG EVERY 24 HOURS NOC
     Dates: start: 20110302
  9. PEMBROLIZUMAB [Concomitant]
     Active Substance: PEMBROLIZUMAB
     Indication: Lung adenocarcinoma stage IV
     Dosage: 200.0 MG EVERY 21 DAYS
     Dates: start: 20230327
  10. OMEPRAZOLE [Concomitant]
     Active Substance: OMEPRAZOLE
     Indication: Product used for unknown indication
     Dosage: 20.0 MG BREAKFAST AND DINNER
     Dates: start: 20160712
  11. GABAPENTIN [Concomitant]
     Active Substance: GABAPENTIN
     Indication: Headache
     Dosage: 300.0 MG AT-DINNER
     Dates: start: 20110621
  12. PREDNISONE [Concomitant]
     Active Substance: PREDNISONE
     Indication: Allergic respiratory disease
     Dosage: 10.0 MG
     Dates: start: 20230214
  13. FEXOFENADINE [Concomitant]
     Active Substance: FEXOFENADINE HYDROCHLORIDE
     Indication: Asthma
     Dosage: 180.0 MG DE
     Dates: start: 20110726
  14. TRYPTIZOL [Concomitant]
     Active Substance: AMITRIPTYLINE HYDROCHLORIDE
     Indication: Headache
     Dosage: 50.0 MG EVERY 24 HOURS NOC
     Dates: start: 20130221
  15. CALCIFEDIOL [Concomitant]
     Active Substance: CALCIFEDIOL
     Indication: Lung adenocarcinoma stage IV
     Dosage: 0.266 MG EVERY 14 DAYS
     Dates: start: 20220423
  16. NOLOTIL [Concomitant]
     Indication: Arthralgia
     Dosage: 575.0 MG DECOME
     Dates: start: 20100225
  17. SERETIDE [Concomitant]
     Active Substance: FLUTICASONE PROPIONATE\SALMETEROL XINAFOATE
     Indication: Asthma
     Dosage: 1.0 PUFF EVERY 12 HOURS
     Dates: start: 20151029

REACTIONS (3)
  - Mucosal inflammation [Recovered/Resolved]
  - Pancytopenia [Recovered/Resolved]
  - Diarrhoea [Recovered/Resolved]

NARRATIVE: CASE EVENT DATE: 20230407
